FAERS Safety Report 16477637 (Version 4)
Quarter: 2019Q3

REPORT INFORMATION
  Report Type: Report from Study
  Country: FR (occurrence: FR)
  Receive Date: 20190626
  Receipt Date: 20190805
  Transmission Date: 20191004
  Serious: Yes (Hospitalization)
  Sender: FDA-Public Use
  Company Number: FR-BAXTER-2019BAX012314

PATIENT
  Age: 11 Year
  Sex: Male
  Weight: 55 kg

DRUGS (16)
  1. ENDOXAN 1000 MG, POUDRE POUR SOLUTIONINJECTABLE [Suspect]
     Active Substance: CYCLOPHOSPHAMIDE
     Indication: RECURRENT CANCER
     Dosage: DAYS 1-5 OF EACH 21-DAY CYCLE
     Route: 042
     Dates: start: 20190321, end: 20190419
  2. ENDOXAN 1000 MG, POUDRE POUR SOLUTIONINJECTABLE [Suspect]
     Active Substance: CYCLOPHOSPHAMIDE
     Dosage: DOSE REDUCED
     Route: 042
     Dates: start: 20190624
  3. ALLOPURINOL. [Concomitant]
     Active Substance: ALLOPURINOL
     Indication: PROPHYLAXIS
     Route: 048
     Dates: start: 20190319, end: 20190325
  4. VENETOCLAX. [Suspect]
     Active Substance: VENETOCLAX
     Indication: RECURRENT CANCER
     Dosage: TABLET
     Route: 048
     Dates: start: 20190319, end: 20190319
  5. TOPOTECAN HYDROCHLORIDE. [Suspect]
     Active Substance: TOPOTECAN HYDROCHLORIDE
     Dosage: DOSE REDUCED
     Route: 042
     Dates: start: 20190624
  6. G-CSF [Concomitant]
     Active Substance: GRANULOCYTE COLONY-STIMULATING FACTOR NOS
     Indication: LEUKOPENIA
  7. VENETOCLAX. [Suspect]
     Active Substance: VENETOCLAX
     Dosage: TABLET
     Route: 048
     Dates: start: 20190405, end: 20190515
  8. ENDOXAN 1000 MG, POUDRE POUR SOLUTIONINJECTABLE [Suspect]
     Active Substance: CYCLOPHOSPHAMIDE
     Indication: REFRACTORY CANCER
     Dosage: DAYS 1-5 OF EACH 21-DAY CYCLE, LAST DOSE PRIOR TO SAE ON 31MAY2019
     Route: 042
     Dates: start: 20190506, end: 20190531
  9. VENETOCLAX. [Suspect]
     Active Substance: VENETOCLAX
     Dosage: TABLET, LAST DOSE PRIOR TO SAE ON 05JUN2019
     Route: 048
     Dates: start: 20190520, end: 20190605
  10. TOPOTECAN HYDROCHLORIDE. [Suspect]
     Active Substance: TOPOTECAN HYDROCHLORIDE
     Indication: RECURRENT CANCER
     Dosage: DAYS 1-5 OF 21 DAYS CYCLE, LAST DOSE PRIOR TO SAE ON 31MAY2019
     Route: 042
     Dates: start: 20190506, end: 20190531
  11. G-CSF [Concomitant]
     Active Substance: GRANULOCYTE COLONY-STIMULATING FACTOR NOS
     Indication: NEUTROPENIA
     Route: 065
     Dates: start: 20190402, end: 20190408
  12. VENETOCLAX. [Suspect]
     Active Substance: VENETOCLAX
     Indication: REFRACTORY CANCER
     Dosage: TABLET
     Route: 048
     Dates: start: 20190320, end: 20190401
  13. VENETOCLAX. [Suspect]
     Active Substance: VENETOCLAX
     Dosage: TABLET, DOSE RE-INTRODUCED
     Route: 048
     Dates: start: 20190617
  14. TOPOTECAN HYDROCHLORIDE. [Suspect]
     Active Substance: TOPOTECAN HYDROCHLORIDE
     Indication: REFRACTORY CANCER
     Dosage: DAYS 1-5 OF EACH 21-DAY CYCLE
     Route: 042
     Dates: start: 20190321, end: 20190419
  15. NORMAL SALINE [Concomitant]
     Active Substance: SODIUM CHLORIDE
     Indication: NEOPLASM PROPHYLAXIS
     Route: 042
     Dates: start: 20190319, end: 20190325
  16. LOPERAMIDE [Concomitant]
     Active Substance: LOPERAMIDE
     Indication: DIARRHOEA
     Route: 048
     Dates: start: 20190413

REACTIONS (1)
  - Febrile bone marrow aplasia [Recovered/Resolved]

NARRATIVE: CASE EVENT DATE: 20190604
